FAERS Safety Report 14092832 (Version 1)
Quarter: 2017Q4

REPORT INFORMATION
  Report Type: Spontaneous
  Country: CN (occurrence: CN)
  Receive Date: 20171016
  Receipt Date: 20171016
  Transmission Date: 20180321
  Serious: Yes (Hospitalization, Disabling, Other)
  Sender: FDA-Public Use
  Company Number: CN-PFIZER INC-2017438942

PATIENT
  Age: 75 Year
  Sex: Female
  Weight: 50 kg

DRUGS (4)
  1. XIN KE [Suspect]
     Active Substance: SIMVASTATIN
     Indication: LIPIDS DECREASED
     Dosage: 20 MG, 1X/DAY
     Route: 048
     Dates: start: 20170806, end: 20170810
  2. LIPITOR [Suspect]
     Active Substance: ATORVASTATIN CALCIUM
     Indication: LIPIDS DECREASED
     Dosage: 40 MG, 1X/DAY
     Route: 048
     Dates: start: 20170810, end: 20170814
  3. IOHEXOL [Concomitant]
     Active Substance: IOHEXOL
     Dosage: 100 ML, UNK
     Route: 042
  4. ZUO KE [Concomitant]
     Active Substance: LEVOFLOXACIN
     Indication: CEREBRAL INFARCTION
     Dosage: 0.3 G, 1X/DAY
     Route: 041
     Dates: start: 20170813, end: 20170814

REACTIONS (5)
  - Hepatic function abnormal [Recovering/Resolving]
  - Abdominal pain upper [Unknown]
  - Chills [Unknown]
  - Hyperpyrexia [Unknown]
  - Pleuritic pain [Unknown]

NARRATIVE: CASE EVENT DATE: 20170813
